FAERS Safety Report 17105294 (Version 2)
Quarter: 2019Q4

REPORT INFORMATION
  Report Type: Spontaneous
  Country: GB (occurrence: GB)
  Receive Date: 20191203
  Receipt Date: 20191203
  Transmission Date: 20200122
  Serious: Yes (Congenital Anomaly)
  Sender: FDA-Public Use
  Company Number: GB-TEVA-2019-GB-1144908

PATIENT
  Sex: Female
  Weight: 3 kg

DRUGS (2)
  1. CLOMID [Concomitant]
     Active Substance: CLOMIPHENE CITRATE
  2. METFORMIN [Suspect]
     Active Substance: METFORMIN HYDROCHLORIDE
     Indication: POLYCYSTIC OVARIES
     Route: 064

REACTIONS (1)
  - Cleft lip [Unknown]
